FAERS Safety Report 6785751-6 (Version None)
Quarter: 2010Q2

REPORT INFORMATION
  Report Type: 
  Country: None (occurrence: None)
  Receive Date: 20100622
  Receipt Date: 20100622
  Transmission Date: 20101027
  Serious: Yes (Hospitalization, Disabling, Other)
  Sender: FDA-Public Use
  Company Number: None

PATIENT
  Sex: Female
  Weight: 89.8122 kg

DRUGS (8)
  1. ZOMETA [Suspect]
     Indication: BREAST CANCER
     Dosage: 4 MG MONTHLY IV
     Route: 042
     Dates: start: 20020101, end: 20070101
  2. ZOMETA [Suspect]
     Indication: METASTASES TO BONE
     Dosage: 4 MG MONTHLY IV
     Route: 042
     Dates: start: 20020101, end: 20070101
  3. AREDIA [Suspect]
     Indication: METASTASES TO BONE
     Dates: start: 20000101, end: 20020101
  4. TAXOTERE [Concomitant]
  5. NAVELBINE [Concomitant]
  6. ARIMIDEX [Concomitant]
  7. FEMARA [Concomitant]
  8. FASLODEX [Concomitant]

REACTIONS (5)
  - FALL [None]
  - FEMUR FRACTURE [None]
  - FOOT FRACTURE [None]
  - MOUTH ULCERATION [None]
  - OSTEONECROSIS OF JAW [None]
